FAERS Safety Report 22318500 (Version 1)
Quarter: 2023Q2

REPORT INFORMATION
  Report Type: Spontaneous
  Country: IN (occurrence: IN)
  Receive Date: 20230515
  Receipt Date: 20230515
  Transmission Date: 20230721
  Serious: Yes (Other)
  Sender: FDA-Public Use
  Company Number: IN-drreddys-LIT/IND/23/0164871

PATIENT
  Age: 51 Year
  Sex: Female

DRUGS (5)
  1. CAPECITABINE [Suspect]
     Active Substance: CAPECITABINE
     Indication: Hormone receptor positive HER2 negative breast cancer
  2. ZOLEDRONIC ACID [Suspect]
     Active Substance: ZOLEDRONIC ACID
     Indication: Hormone receptor positive HER2 negative breast cancer
     Dates: start: 2016
  3. PACLITAXEL [Suspect]
     Active Substance: PACLITAXEL
     Indication: Hormone receptor positive HER2 negative breast cancer
  4. TAMOXIFEN [Suspect]
     Active Substance: TAMOXIFEN
     Indication: Hormone receptor positive HER2 negative breast cancer
     Dates: start: 2016
  5. EXEMESTANE [Suspect]
     Active Substance: EXEMESTANE
     Indication: Hormone receptor positive HER2 negative breast cancer

REACTIONS (6)
  - Breast cancer [Recovering/Resolving]
  - Metastases to liver [Unknown]
  - Metastases to lung [Unknown]
  - Metastases to liver [Unknown]
  - Drug ineffective [Unknown]
  - Product use in unapproved indication [Unknown]

NARRATIVE: CASE EVENT DATE: 20161001
